FAERS Safety Report 11857296 (Version 1)
Quarter: 2015Q4

REPORT INFORMATION
  Report Type: Spontaneous
  Country: US (occurrence: US)
  Receive Date: 20151221
  Receipt Date: 20151221
  Transmission Date: 20160305
  Serious: Yes (Other)
  Sender: FDA-Public Use
  Company Number: US-PFIZER INC-2015450456

PATIENT
  Age: 46 Year
  Sex: Female
  Weight: 62.6 kg

DRUGS (1)
  1. SERTRALINE HCL [Suspect]
     Active Substance: SERTRALINE HYDROCHLORIDE
     Dosage: UNK

REACTIONS (10)
  - Disease recurrence [Unknown]
  - Gastrointestinal haemorrhage [Unknown]
  - Eye swelling [Unknown]
  - Malaise [Unknown]
  - Neuralgia [Unknown]
  - Hypersensitivity [Unknown]
  - Skin lesion [Unknown]
  - Joint swelling [Unknown]
  - Dehydration [Unknown]
  - Diarrhoea [Unknown]

NARRATIVE: CASE EVENT DATE: 201508
